FAERS Safety Report 25852898 (Version 1)
Quarter: 2025Q3

REPORT INFORMATION
  Report Type: Spontaneous
  Country: CN (occurrence: CN)
  Receive Date: 20250926
  Receipt Date: 20250926
  Transmission Date: 20251021
  Serious: Yes (Hospitalization)
  Sender: PFIZER
  Company Number: CN-PFIZER INC-PV202500114471

PATIENT
  Age: 12 Year
  Sex: Male
  Weight: 49.4 kg

DRUGS (3)
  1. CYTARABINE [Suspect]
     Active Substance: CYTARABINE
     Indication: Acute lymphocytic leukaemia
     Dosage: 0.073 G, 2X/DAY
     Route: 041
     Dates: start: 20250905, end: 20250911
  2. MERCAPTOPURINE [Concomitant]
     Active Substance: MERCAPTOPURINE
     Indication: Acute lymphocytic leukaemia
     Dosage: 58.4 MG, 1X/DAY
     Route: 048
     Dates: start: 20250905, end: 20250911
  3. CYCLOPHOSPHAMIDE [Concomitant]
     Active Substance: CYCLOPHOSPHAMIDE
     Indication: Acute lymphocytic leukaemia
     Dosage: 1.46 G, 1X/DAY
     Route: 041
     Dates: start: 20250905, end: 20250905

REACTIONS (2)
  - Hyperpyrexia [Recovering/Resolving]
  - Pyrexia [Recovering/Resolving]

NARRATIVE: CASE EVENT DATE: 20250909
